FAERS Safety Report 8120329-3 (Version None)
Quarter: 2012Q1

REPORT INFORMATION
  Report Type: 
  Country: None (occurrence: None)
  Receive Date: 20120207
  Receipt Date: 20120206
  Transmission Date: 20120608
  Serious: Yes (Other)
  Sender: FDA-Public Use
  Company Number: US-GLAXOSMITHKLINE-A0952483A

PATIENT
  Age: 49 Year
  Sex: Female

DRUGS (7)
  1. ALBUTEROL SULFATE [Suspect]
  2. ALAVERT [Concomitant]
  3. PREMARIN [Concomitant]
  4. NASAL SPRAY [Concomitant]
     Route: 045
  5. ADVAIR DISKUS 100/50 [Suspect]
     Indication: ASTHMA
     Dosage: 1PUFF TWICE PER DAY
     Route: 055
     Dates: start: 20101201
  6. LISINOPRIL [Concomitant]
  7. ALBUTEROL SULFATE [Concomitant]

REACTIONS (7)
  - DRUG INEFFECTIVE [None]
  - NASAL SEPTUM DEVIATION [None]
  - DRUG ADMINISTRATION ERROR [None]
  - PRODUCT QUALITY ISSUE [None]
  - ANOSMIA [None]
  - SINUSITIS [None]
  - COUGH [None]
